FAERS Safety Report 6421511-3 (Version None)
Quarter: 2009Q4

REPORT INFORMATION
  Report Type: 
  Country: None (occurrence: None)
  Receive Date: 20091030
  Receipt Date: 20091021
  Transmission Date: 20100525
  Serious: Yes (Other)
  Sender: FDA-Public Use
  Company Number: US-JNJFOC-20090506672

PATIENT
  Sex: Male

DRUGS (2)
  1. RISPERDAL [Suspect]
     Indication: DEPRESSION
     Dosage: PATIENT WAS ON 3MG,4MG AND 5MG OF RISPERIDONE.
     Route: 065
  2. SEROQUEL [Suspect]
     Indication: DEPRESSION
     Dosage: PATIENT WAS ON 200MG.300MG AND 400MG OF QUETIAPINE
     Route: 065

REACTIONS (1)
  - TYPE 2 DIABETES MELLITUS [None]
